FAERS Safety Report 14317499 (Version 3)
Quarter: 2018Q1

REPORT INFORMATION
  Report Type: Spontaneous
  Country: AR (occurrence: AR)
  Receive Date: 20171222
  Receipt Date: 20180117
  Transmission Date: 20180509
  Serious: Yes (Death, Hospitalization, Other)
  Sender: FDA-Public Use
  Company Number: AR-009507513-1712ARG010347

PATIENT
  Age: 79 Year
  Sex: Male

DRUGS (3)
  1. KEYTRUDA [Suspect]
     Active Substance: PEMBROLIZUMAB
     Dosage: UNK, SECOND CYCLE
     Dates: start: 20171127, end: 20171127
  2. KEYTRUDA [Suspect]
     Active Substance: PEMBROLIZUMAB
     Indication: METASTATIC MALIGNANT MELANOMA
     Dosage: UNK,FIRST CYCLE
     Dates: start: 20171106
  3. COLISTIN [Suspect]
     Active Substance: COLISTIN
     Dosage: UNK

REACTIONS (4)
  - Myasthenic syndrome [Recovering/Resolving]
  - Renal failure [Fatal]
  - Pneumonia [Unknown]
  - Respiratory failure [Recovering/Resolving]

NARRATIVE: CASE EVENT DATE: 2017
